FAERS Safety Report 17478220 (Version 1)
Quarter: 2020Q1

REPORT INFORMATION
  Report Type: Spontaneous
  Country: US (occurrence: US)
  Receive Date: 20200228
  Receipt Date: 20200228
  Transmission Date: 20200409
  Serious: No
  Sender: FDA-Public Use
  Company Number: US-ABBVIE-19K-163-3012049-00

PATIENT
  Age: 12 Year
  Sex: Male

DRUGS (7)
  1. VALPROIC ACID. [Suspect]
     Active Substance: VALPROIC ACID
     Route: 048
     Dates: start: 201905
  2. VALPROIC ACID. [Suspect]
     Active Substance: VALPROIC ACID
     Indication: BIPOLAR DISORDER
     Route: 048
     Dates: start: 201902, end: 201905
  3. DEPAKOTE [Suspect]
     Active Substance: DIVALPROEX SODIUM
     Indication: PRODUCT USED FOR UNKNOWN INDICATION
     Route: 065
  4. GUANFACINE. [Concomitant]
     Active Substance: GUANFACINE
     Indication: PRODUCT USED FOR UNKNOWN INDICATION
     Dates: end: 201906
  5. ZIPRASIDONE ACTAVIS [Concomitant]
     Indication: PRODUCT USED FOR UNKNOWN INDICATION
     Dates: start: 201908
  6. CLONIDINE. [Concomitant]
     Active Substance: CLONIDINE
     Indication: PRODUCT USED FOR UNKNOWN INDICATION
     Dates: start: 201906
  7. QUETIAPINE. [Concomitant]
     Active Substance: QUETIAPINE
     Indication: PRODUCT USED FOR UNKNOWN INDICATION
     Dates: end: 201908

REACTIONS (1)
  - Drug level increased [Not Recovered/Not Resolved]

NARRATIVE: CASE EVENT DATE: 20191115
